FAERS Safety Report 12687576 (Version 1)
Quarter: 2016Q3

REPORT INFORMATION
  Report Type: Spontaneous
  Country: US (occurrence: US)
  Receive Date: 20160826
  Receipt Date: 20160826
  Transmission Date: 20161109
  Serious: Yes (Other)
  Sender: FDA-Public Use
  Company Number: US-009507513-1608USA011143

PATIENT
  Sex: Female

DRUGS (1)
  1. COZAAR [Suspect]
     Active Substance: LOSARTAN POTASSIUM
     Dosage: HALF OF ^NORMAL DOSE^
     Route: 048

REACTIONS (3)
  - Intentional product use issue [Unknown]
  - Anxiety [Unknown]
  - Hyperkalaemia [Unknown]
